FAERS Safety Report 8300958-4 (Version None)
Quarter: 2012Q2

REPORT INFORMATION
  Report Type: 
  Country: None (occurrence: None)
  Receive Date: 20120420
  Receipt Date: 20120413
  Transmission Date: 20120825
  Serious: Yes (Other)
  Sender: FDA-Public Use
  Company Number: US-BAYER-2012-036892

PATIENT

DRUGS (2)
  1. ALEVE (CAPLET) [Suspect]
     Indication: SINUSITIS
  2. ALEVE (CAPLET) [Suspect]
     Indication: NASOPHARYNGITIS
     Dosage: UNK UNK, PRN
     Route: 048

REACTIONS (1)
  - CONVULSION [None]
